FAERS Safety Report 9960394 (Version 1)
Quarter: 2014Q1

REPORT INFORMATION
  Report Type: Report from Study
  Country: US (occurrence: US)
  Receive Date: 20140305
  Receipt Date: 20140305
  Transmission Date: 20141002
  Serious: No
  Sender: FDA-Public Use
  Company Number: US-ABBVIE-13P-163-1110381-00

PATIENT
  Age: 51 Year
  Sex: Female

DRUGS (13)
  1. HUMIRA [Suspect]
     Indication: RHEUMATOID ARTHRITIS
     Dates: start: 20130510, end: 20130624
  2. ISOSORBIDE MONONITRATE [Concomitant]
     Indication: PRODUCT USED FOR UNKNOWN INDICATION
  3. GABAPENTIN [Concomitant]
  4. TRAMADOL [Concomitant]
     Indication: PAIN
     Dosage: 25 MG EVERY 6 HOURS AS NEEDED
  5. BYSTOLIC [Concomitant]
     Indication: HYPERTENSION
     Dosage: 5 MG EVERY DAY
  6. XANAX [Concomitant]
     Indication: INSOMNIA
     Dosage: 0.25 MG AT NIGHT
  7. PLAQUENIL [Concomitant]
     Indication: PRODUCT USED FOR UNKNOWN INDICATION
     Dosage: 200 MG TWICE A DAY
  8. LANTUS [Concomitant]
     Indication: PRODUCT USED FOR UNKNOWN INDICATION
     Dosage: 45 U TWICE DAILY
  9. HUMALOG [Concomitant]
     Indication: PRODUCT USED FOR UNKNOWN INDICATION
     Dosage: 25U BEFORE MEALS AND THEN AS NEEDED SLIDING SCALE
  10. OMEPRAZOLE [Concomitant]
     Indication: PRODUCT USED FOR UNKNOWN INDICATION
     Dosage: 20 MG ONCE DAILY
  11. PREDNISONE [Concomitant]
     Indication: PRODUCT USED FOR UNKNOWN INDICATION
     Dosage: 15 MG ONCE DAILY
  12. PREDNISONE [Concomitant]
     Dosage: 10 ONCE DAILY
  13. PREDNISONE [Concomitant]
     Dosage: 5 MG ONCE DAILY

REACTIONS (2)
  - Contusion [Unknown]
  - Fall [Not Recovered/Not Resolved]
